FAERS Safety Report 18583148 (Version 1)
Quarter: 2020Q4

REPORT INFORMATION
  Report Type: Spontaneous
  Country: NG (occurrence: NG)
  Receive Date: 20201206
  Receipt Date: 20201206
  Transmission Date: 20210114
  Serious: Yes (Other)
  Sender: FDA-Public Use
  Company Number: NG-AMNEAL PHARMACEUTICALS-2020-AMRX-03748

PATIENT
  Age: 84 Year
  Sex: Male

DRUGS (12)
  1. AMIKACIN. [Concomitant]
     Active Substance: AMIKACIN
     Indication: ENDOPHTHALMITIS
     Dosage: UNK
  2. MOXIFLOXACIN. [Concomitant]
     Active Substance: MOXIFLOXACIN
     Indication: ENDOPHTHALMITIS
     Dosage: UNK
     Route: 061
  3. AVASTIN [Concomitant]
     Active Substance: BEVACIZUMAB
     Indication: NEOVASCULARISATION
     Dosage: UNK
  4. LINEZOLID. [Suspect]
     Active Substance: LINEZOLID
     Indication: ENDOPHTHALMITIS
     Dosage: 600 MILLIGRAM, BID
     Route: 048
  5. VANCOMYCINUM [VANCOMYCIN] [Concomitant]
     Indication: ENDOPHTHALMITIS
     Dosage: 1 MG IN 0.1 ML
  6. CEFTAZIDIME. [Concomitant]
     Active Substance: CEFTAZIDIME
     Indication: ENDOPHTHALMITIS
     Dosage: 2 MG IN 0.1 ML
  7. LINEZOLID. [Suspect]
     Active Substance: LINEZOLID
     Dosage: 200 MCG IN 0.1ML, 28 DAYS AFTER THE INITIAL CATARACT SURGERY
  8. DEXAMETHASONE. [Concomitant]
     Active Substance: DEXAMETHASONE
     Indication: ENDOPHTHALMITIS
     Dosage: UNK
     Route: 061
  9. AMPHOTERICIN B. [Concomitant]
     Active Substance: AMPHOTERICIN B
     Indication: ENDOPHTHALMITIS
     Dosage: UNK
  10. FLUCONAZOLE. [Concomitant]
     Active Substance: FLUCONAZOLE
     Indication: ENDOPHTHALMITIS
     Dosage: 200 MILLIGRAM, BID
     Route: 048
  11. DEPO-MEDROL [Concomitant]
     Active Substance: METHYLPREDNISOLONE ACETATE
     Indication: CORNEAL DISORDER
     Dosage: 0.5ML CONTAINING 20 MG OF METHYL
     Route: 057
  12. ATROPINE. [Concomitant]
     Active Substance: ATROPINE
     Indication: ENDOPHTHALMITIS
     Dosage: UNK
     Route: 061

REACTIONS (2)
  - Serous retinal detachment [Not Recovered/Not Resolved]
  - Treatment failure [Unknown]
